FAERS Safety Report 5257957-9 (Version None)
Quarter: 2007Q1

REPORT INFORMATION
  Report Type: 
  Country: None (occurrence: None)
  Receive Date: 20070307
  Receipt Date: 20061215
  Transmission Date: 20070707
  Serious: No
  Sender: FDA-Public Use
  Company Number: US-GLAXOSMITHKLINE-A0627051A

PATIENT
  Age: 75 Year
  Sex: Male

DRUGS (21)
  1. REQUIP [Suspect]
     Indication: RESTLESS LEGS SYNDROME
     Dosage: 4MG PER DAY
     Route: 048
  2. CYMBALTA [Concomitant]
  3. RITALIN [Concomitant]
  4. XANAX [Concomitant]
  5. PLAVIX [Concomitant]
  6. SPIRONOLACTONE [Concomitant]
  7. METOPROLOL SUCCINATE [Concomitant]
  8. SIMVASTATIN [Concomitant]
  9. ISOSORBIDE DINITRATE [Concomitant]
  10. FUROSEMIDE [Concomitant]
  11. ASPIRIN [Concomitant]
  12. UNKNOWN MEDICATION [Concomitant]
  13. GABAPENTIN [Concomitant]
  14. MULTI-VITAMIN [Concomitant]
  15. CALCIUM + VIT D [Concomitant]
  16. DIOVAN [Concomitant]
  17. ASCORBIC ACID [Concomitant]
  18. NOVOLIN N [Concomitant]
  19. FLUNISOLIDE [Concomitant]
  20. COMBIVENT [Concomitant]
  21. PROSCAR [Concomitant]

REACTIONS (1)
  - DRUG INEFFECTIVE [None]
